FAERS Safety Report 6275952-8 (Version None)
Quarter: 2009Q3

REPORT INFORMATION
  Report Type: 
  Country: None (occurrence: None)
  Receive Date: 20090720
  Receipt Date: 20090715
  Transmission Date: 20100115
  Serious: Yes (Death)
  Sender: FDA-Public Use
  Company Number: 2009SP015629

PATIENT
  Sex: Male

DRUGS (4)
  1. NASONEX [Suspect]
     Indication: DRUG USE FOR UNKNOWN INDICATION
     Dosage: NAS
     Route: 045
  2. ALVESCO [Suspect]
     Indication: DRUG USE FOR UNKNOWN INDICATION
  3. SYMBICORT [Suspect]
     Indication: DRUG USE FOR UNKNOWN INDICATION
  4. THEOPHYLLINE [Suspect]
     Indication: DRUG USE FOR UNKNOWN INDICATION

REACTIONS (1)
  - DEATH [None]
